FAERS Safety Report 25132808 (Version 1)
Quarter: 2025Q1

REPORT INFORMATION
  Report Type: Spontaneous
  Country: CN (occurrence: CN)
  Receive Date: 20250328
  Receipt Date: 20250328
  Transmission Date: 20250409
  Serious: Yes (Other)
  Sender: BEIGENE
  Company Number: CN-BEIGENE-BGN-2025-004627

PATIENT
  Age: 78 Year
  Weight: 54 kg

DRUGS (12)
  1. TISLELIZUMAB [Suspect]
     Active Substance: TISLELIZUMAB
     Indication: Lung neoplasm malignant
  2. TISLELIZUMAB [Suspect]
     Active Substance: TISLELIZUMAB
  3. TISLELIZUMAB [Suspect]
     Active Substance: TISLELIZUMAB
  4. TISLELIZUMAB [Suspect]
     Active Substance: TISLELIZUMAB
  5. CARBOPLATIN [Suspect]
     Active Substance: CARBOPLATIN
     Indication: Lung neoplasm malignant
  6. CARBOPLATIN [Suspect]
     Active Substance: CARBOPLATIN
  7. CARBOPLATIN [Suspect]
     Active Substance: CARBOPLATIN
  8. CARBOPLATIN [Suspect]
     Active Substance: CARBOPLATIN
  9. ETOPOSIDE [Suspect]
     Active Substance: ETOPOSIDE
     Indication: Lung neoplasm malignant
  10. ETOPOSIDE [Suspect]
     Active Substance: ETOPOSIDE
  11. ETOPOSIDE [Suspect]
     Active Substance: ETOPOSIDE
  12. ETOPOSIDE [Suspect]
     Active Substance: ETOPOSIDE

REACTIONS (1)
  - Myelosuppression [Recovering/Resolving]
